FAERS Safety Report 20297843 (Version 1)
Quarter: 2022Q1

REPORT INFORMATION
  Report Type: Spontaneous
  Country: US (occurrence: US)
  Receive Date: 20220105
  Receipt Date: 20220105
  Transmission Date: 20220424
  Serious: No
  Sender: FDA-Public Use
  Company Number: US-TEVA-2021-US-1988302

PATIENT
  Sex: Female
  Weight: 99.79 kg

DRUGS (1)
  1. NIACIN [Suspect]
     Active Substance: NIACIN
     Route: 065

REACTIONS (1)
  - Rash [Not Recovered/Not Resolved]
